FAERS Safety Report 16998140 (Version 4)
Quarter: 2020Q1

REPORT INFORMATION
  Report Type: Spontaneous
  Country: FR (occurrence: FR)
  Receive Date: 20191106
  Receipt Date: 20200113
  Transmission Date: 20200409
  Serious: Yes (Other)
  Sender: FDA-Public Use
  Company Number: FR-SA-2019SA305522

PATIENT
  Age: 49 Year
  Sex: Female
  Weight: 48 kg

DRUGS (6)
  1. LOVENOX [Suspect]
     Active Substance: ENOXAPARIN SODIUM
     Dosage: UNK
     Route: 065
     Dates: start: 20191020, end: 20191021
  2. ELIQUIS [Concomitant]
     Active Substance: APIXABAN
     Dosage: UNK
  3. XARELTO [Concomitant]
     Active Substance: RIVAROXABAN
     Dosage: UNK
  4. LOVENOX [Suspect]
     Active Substance: ENOXAPARIN SODIUM
     Indication: PHLEBITIS
     Dosage: TWO INJECTIONS PER DAY FOR 7 DAYS
     Dates: start: 20191015
  5. OLOXINE [Concomitant]
  6. LOVENOX [Suspect]
     Active Substance: ENOXAPARIN SODIUM
     Dosage: UNK
     Dates: start: 20191023, end: 20191030

REACTIONS (10)
  - Hepatic failure [Unknown]
  - Feeling hot [Unknown]
  - Epigastric discomfort [Unknown]
  - Pain [Not Recovered/Not Resolved]
  - Swelling face [Unknown]
  - Paraesthesia [Unknown]
  - Hypoaesthesia [Unknown]
  - Dyspnoea [Unknown]
  - Lip swelling [Unknown]
  - Transaminases increased [Unknown]

NARRATIVE: CASE EVENT DATE: 20191015
